FAERS Safety Report 4890773-6 (Version None)
Quarter: 2006Q1

REPORT INFORMATION
  Report Type: 
  Country: None (occurrence: None)
  Receive Date: 20060123
  Receipt Date: 20060113
  Transmission Date: 20060701
  Serious: Yes (Other)
  Sender: FDA-Public Use
  Company Number: 163-20785-06010305

PATIENT
  Age: 65 Year
  Sex: Male

DRUGS (2)
  1. THALOMID [Suspect]
     Indication: MULTIPLE MYELOMA
     Dosage: 50 MG, DAILY, ORAL
     Route: 048
     Dates: start: 20031008, end: 20031201
  2. DEXAMETHASONE [Concomitant]

REACTIONS (2)
  - MONOCLONAL IMMUNOGLOBULIN PRESENT [None]
  - RETINAL VEIN OCCLUSION [None]
